FAERS Safety Report 18664121 (Version 1)
Quarter: 2020Q4

REPORT INFORMATION
  Report Type: Spontaneous
  Country: CH (occurrence: CH)
  Receive Date: 20201225
  Receipt Date: 20201225
  Transmission Date: 20210114
  Serious: Yes (Death, Other)
  Sender: FDA-Public Use
  Company Number: CH-B.I. PHARMACEUTICALS,INC./RIDGEFIELD-2020-BI-072214

PATIENT
  Age: 91 Year
  Sex: Female

DRUGS (5)
  1. PRAXBIND [Suspect]
     Active Substance: IDARUCIZUMAB
     Indication: PRODUCT USED FOR UNKNOWN INDICATION
     Dosage: IN TOTAL FREQUENCY: 1, FREQUENCY UNIT: 809
     Route: 065
     Dates: start: 20200712
  2. OCTAPLEX [Concomitant]
     Active Substance: COAGULATION FACTOR IX HUMAN\COAGULATION FACTOR VII HUMAN\COAGULATION FACTOR X HUMAN\PROTEIN C\PROTEIN S HUMAN\PROTHROMBIN
     Indication: PRODUCT USED FOR UNKNOWN INDICATION
     Dosage: IN TOTAL FREQUENCY: 1, FREQUENCY UNIT: 809
     Route: 065
     Dates: start: 20200712
  3. KONAKION [Concomitant]
     Active Substance: PHYTONADIONE
     Indication: PRODUCT USED FOR UNKNOWN INDICATION
     Dosage: IN TOTAL FREQUENCY: 1, FREQUENCY UNIT: 809
     Route: 065
     Dates: start: 20200712
  4. PRADAXA [Concomitant]
     Active Substance: DABIGATRAN ETEXILATE MESYLATE
     Indication: PRODUCT USED FOR UNKNOWN INDICATION
     Route: 065
     Dates: end: 20200515
  5. PRADAXA [Concomitant]
     Active Substance: DABIGATRAN ETEXILATE MESYLATE
     Dates: start: 20200527, end: 20200711

REACTIONS (1)
  - Ischaemic stroke [Fatal]

NARRATIVE: CASE EVENT DATE: 20200715
